FAERS Safety Report 16143514 (Version 5)
Quarter: 2019Q2

REPORT INFORMATION
  Report Type: Report from Study
  Country: SG (occurrence: SG)
  Receive Date: 20190401
  Receipt Date: 20190429
  Transmission Date: 20190711
  Serious: Yes (Hospitalization, Disabling)
  Sender: FDA-Public Use
  Company Number: SG-PFIZER INC-2019136160

PATIENT
  Age: 51 Year
  Sex: Male
  Weight: 78 kg

DRUGS (6)
  1. DEXAMETHASONE. [Concomitant]
     Active Substance: DEXAMETHASONE
     Indication: OEDEMA
     Dosage: UNK
     Dates: start: 20180620
  2. LORLATINIB [Suspect]
     Active Substance: LORLATINIB
     Indication: LUNG ADENOCARCINOMA STAGE IV
     Dosage: 100 MG, 1X/DAY
     Route: 048
     Dates: start: 20180621
  3. KEPPRA [Concomitant]
     Active Substance: LEVETIRACETAM
     Indication: EPILEPSY
     Dosage: 750 MG, 2X/DAY
     Route: 048
     Dates: start: 20180605
  4. ATORVASTATIN [Concomitant]
     Active Substance: ATORVASTATIN
     Indication: HYPERLIPIDAEMIA
     Dosage: 40 MG, UNK
     Route: 048
     Dates: start: 20180621
  5. FENOFIBRATE. [Concomitant]
     Active Substance: FENOFIBRATE
     Indication: HYPERTRIGLYCERIDAEMIA
     Dosage: 200 MG, 1X/DAY
     Dates: start: 20180820
  6. HYDROCORTISONE. [Concomitant]
     Active Substance: HYDROCORTISONE
     Indication: CORTISOL DECREASED
     Dosage: 10 MG, 1X/DAY
     Dates: start: 20180620

REACTIONS (3)
  - Visual acuity reduced [Recovering/Resolving]
  - Papilloedema [Recovering/Resolving]
  - Vision blurred [Recovering/Resolving]

NARRATIVE: CASE EVENT DATE: 20190215
